FAERS Safety Report 8852457 (Version 1)
Quarter: 2012Q4

REPORT INFORMATION
  Report Type: 
  Country: JP (occurrence: JP)
  Receive Date: 20121022
  Receipt Date: 20121022
  Transmission Date: 20130627
  Serious: Yes (Other)
  Sender: FDA-Public Use
  Company Number: JP-PFIZER INC-2012262890

PATIENT
  Age: 87 Year
  Sex: Female

DRUGS (2)
  1. LYRICA [Suspect]
     Dosage: 75 mg, UNK
     Route: 048
     Dates: start: 201209
  2. METHYCOBAL [Concomitant]
     Dosage: UNK

REACTIONS (2)
  - Retinal degeneration [Unknown]
  - Glaucoma [Unknown]
